FAERS Safety Report 26035735 (Version 1)
Quarter: 2025Q4

REPORT INFORMATION
  Report Type: Spontaneous
  Country: TR (occurrence: TR)
  Receive Date: 20251112
  Receipt Date: 20251112
  Transmission Date: 20260118
  Serious: Yes (Other)
  Sender: SANDOZ
  Company Number: TR-002147023-NVSC2025TR172471

PATIENT

DRUGS (1)
  1. RITALIN [Suspect]
     Active Substance: METHYLPHENIDATE HYDROCHLORIDE
     Indication: Product used for unknown indication
     Dosage: UNK  (5 YEARS AGO)
     Route: 065

REACTIONS (4)
  - Altered state of consciousness [Unknown]
  - Emotional disorder [Unknown]
  - Feeling abnormal [Unknown]
  - Overdose [Unknown]
